FAERS Safety Report 23141270 (Version 1)
Quarter: 2023Q4

REPORT INFORMATION
  Report Type: Report from Study
  Country: US (occurrence: US)
  Receive Date: 20231103
  Receipt Date: 20231103
  Transmission Date: 20240109
  Serious: Yes (Hospitalization, Other)
  Sender: FDA-Public Use
  Company Number: US-ALXN-A202314143

PATIENT
  Sex: Female

DRUGS (1)
  1. ULTOMIRIS [Suspect]
     Active Substance: RAVULIZUMAB-CWVZ
     Indication: Myasthenia gravis
     Dosage: UNK
     Route: 065

REACTIONS (6)
  - Myasthenia gravis crisis [Recovering/Resolving]
  - Ophthalmoplegia [Not Recovered/Not Resolved]
  - Illness [Recovering/Resolving]
  - Dyspnoea [Recovering/Resolving]
  - Head discomfort [Unknown]
  - Drug ineffective [Unknown]
